FAERS Safety Report 10017555 (Version 2)
Quarter: 2014Q2

REPORT INFORMATION
  Report Type: Spontaneous
  Country: US (occurrence: US)
  Receive Date: 20140318
  Receipt Date: 20140415
  Transmission Date: 20141212
  Serious: Yes (Other)
  Sender: FDA-Public Use
  Company Number: US-CELGENEUS-163-POMAL-14030687

PATIENT
  Age: 85 Year
  Sex: Male

DRUGS (5)
  1. POMALYST [Suspect]
     Indication: PLASMA CELL MYELOMA
     Dosage: 3 MILLIGRAM
     Route: 048
     Dates: start: 20140211, end: 20140221
  2. POMALYST [Suspect]
     Dosage: 3 MILLIGRAM
     Route: 048
     Dates: start: 20140305
  3. DEXAMETHASONE [Concomitant]
     Indication: PLASMA CELL MYELOMA
     Route: 065
     Dates: start: 2003, end: 2007
  4. DEXAMETHASONE [Concomitant]
     Route: 065
     Dates: start: 201210, end: 201312
  5. DEXAMETHASONE [Concomitant]
     Route: 065
     Dates: start: 201402

REACTIONS (1)
  - Palpitations [Recovered/Resolved]
